FAERS Safety Report 13866567 (Version 1)
Quarter: 2017Q3

REPORT INFORMATION
  Report Type: Spontaneous
  Country: US (occurrence: US)
  Receive Date: 20170814
  Receipt Date: 20170814
  Transmission Date: 20171127
  Serious: Yes (Other)
  Sender: FDA-Public Use
  Company Number: US-ROCHE-1847303

PATIENT
  Sex: Female

DRUGS (1)
  1. ACTEMRA [Suspect]
     Active Substance: TOCILIZUMAB
     Indication: RHEUMATOID ARTHRITIS
     Dosage: PREFILLED SYRINGE EVERY OTHER WEEK
     Route: 058

REACTIONS (3)
  - Urinary tract infection [Recovered/Resolved]
  - Sinusitis [Not Recovered/Not Resolved]
  - Herpes zoster [Recovered/Resolved]
